FAERS Safety Report 5455147-8 (Version None)
Quarter: 2007Q3

REPORT INFORMATION
  Report Type: 
  Country: None (occurrence: None)
  Receive Date: 20070914
  Receipt Date: 20070903
  Transmission Date: 20080115
  Serious: Yes (Other)
  Sender: FDA-Public Use
  Company Number: GXKR2007GB07701

PATIENT
  Age: 66 Year
  Sex: Male
  Weight: 104 kg

DRUGS (2)
  1. LISINOPRIL [Suspect]
     Indication: HYPERTENSION
     Dosage: 5 MG, ORAL, 10 MG, ORAL
     Route: 048
     Dates: start: 20070803, end: 20070806
  2. AMLODIPINE [Concomitant]

REACTIONS (4)
  - ABASIA [None]
  - COUGH [None]
  - OEDEMA PERIPHERAL [None]
  - SENSATION OF HEAVINESS [None]
